FAERS Safety Report 5957477-X (Version None)
Quarter: 2008Q4

REPORT INFORMATION
  Report Type: 
  Country: None (occurrence: None)
  Receive Date: 20081114
  Receipt Date: 20081031
  Transmission Date: 20090506
  Serious: Yes (Hospitalization)
  Sender: FDA-Public Use
  Company Number: 16742

PATIENT
  Age: 44 Year
  Sex: Female
  Weight: 79.3795 kg

DRUGS (8)
  1. NITROQUICK 0.4MG SUBLINGUAL TABLETS (ETHEX CORP.) [Suspect]
     Indication: CHEST PAIN
     Dosage: 0.4MG PRN SUBLINGUAL
     Route: 060
     Dates: start: 20080701
  2. PLAVIX [Concomitant]
  3. ATENOLOL [Concomitant]
  4. SIMVASTATIN [Concomitant]
  5. PANTOPRAZOLE SODIUM [Concomitant]
  6. POTASSIUM CHLORIDE [Concomitant]
  7. ASPIRIN [Concomitant]
  8. SYMBYAX [Concomitant]

REACTIONS (4)
  - ANXIETY [None]
  - CONDITION AGGRAVATED [None]
  - DRY MOUTH [None]
  - PRODUCT QUALITY ISSUE [None]
